FAERS Safety Report 16289401 (Version 3)
Quarter: 2019Q2

REPORT INFORMATION
  Report Type: Spontaneous
  Country: US (occurrence: US)
  Receive Date: 20190509
  Receipt Date: 20190618
  Transmission Date: 20190711
  Serious: No
  Sender: FDA-Public Use
  Company Number: US-GW PHARMA-201903USGW0782

PATIENT

DRUGS (5)
  1. EPIDIOLEX [Suspect]
     Active Substance: CANNABIDIOL
     Indication: LENNOX-GASTAUT SYNDROME
     Dosage: 150 MILLIGRAM, BID
     Route: 048
     Dates: start: 20190204, end: 201902
  2. EPIDIOLEX [Suspect]
     Active Substance: CANNABIDIOL
     Dosage: 440 MILLIGRAM, BID
     Route: 048
     Dates: start: 20190218, end: 2019
  3. EPIDIOLEX [Suspect]
     Active Substance: CANNABIDIOL
     Dosage: 580 MILLIGRAM, BID
     Route: 048
     Dates: start: 201903, end: 201903
  4. EPIDIOLEX [Suspect]
     Active Substance: CANNABIDIOL
     Dosage: 290 MILLIGRAM, BID
     Route: 048
     Dates: start: 201902, end: 201902
  5. EPIDIOLEX [Suspect]
     Active Substance: CANNABIDIOL
     Dosage: 150 MILLIGRAM, BID
     Route: 048
     Dates: start: 2019, end: 201903

REACTIONS (3)
  - Fatigue [Unknown]
  - Decreased appetite [Unknown]
  - Nausea [Unknown]

NARRATIVE: CASE EVENT DATE: 2019
